FAERS Safety Report 10391114 (Version 4)
Quarter: 2016Q1

REPORT INFORMATION
  Report Type: Report from Study
  Country: FR (occurrence: FR)
  Receive Date: 20140818
  Receipt Date: 20160119
  Transmission Date: 20160525
  Serious: Yes (Hospitalization, Other)
  Sender: FDA-Public Use
  Company Number: FR-BRISTOL-MYERS SQUIBB COMPANY-21295514

PATIENT
  Age: 74 Year
  Sex: Female
  Weight: 74 kg

DRUGS (15)
  1. DASATINIB [Suspect]
     Active Substance: DASATINIB
     Indication: CHRONIC MYELOID LEUKAEMIA
     Dosage: INTERRUPTED IN 2014 AND RESTARTED ON 04-JUL-2012
     Route: 065
     Dates: start: 20120521, end: 20120704
  2. COTRIATEC [Concomitant]
     Active Substance: HYDROCHLOROTHIAZIDE\RAMIPRIL
     Indication: HYPERTENSION
     Dosage: UNK
     Route: 048
     Dates: start: 1994
  3. PRAVASTATIN SODIUM. [Concomitant]
     Active Substance: PRAVASTATIN SODIUM
     Indication: HYPOCHOLESTEROLAEMIA
     Dosage: UNK
     Route: 065
     Dates: start: 2009
  4. DASATINIB [Suspect]
     Active Substance: DASATINIB
     Dosage: 100 MG, UNK
     Route: 065
     Dates: start: 20140618, end: 20140826
  5. DIAMICRON [Concomitant]
     Active Substance: GLICLAZIDE
     Indication: DIABETES MELLITUS
     Dosage: 1DF:30 UNIT NOS
     Route: 048
     Dates: start: 2009
  6. CELIPROLOL [Concomitant]
     Active Substance: CELIPROLOL
     Indication: HYPERTENSION
     Dosage: 200 MG, QD
     Route: 065
  7. ONBREZ [Concomitant]
     Active Substance: INDACATEROL
     Indication: RASH
     Route: 065
  8. MEDROL [Concomitant]
     Active Substance: METHYLPREDNISOLONE
     Indication: PRODUCT USED FOR UNKNOWN INDICATION
     Dosage: UNK
     Route: 065
     Dates: start: 20140501, end: 20140911
  9. DASATINIB [Suspect]
     Active Substance: DASATINIB
     Dosage: 70 MG, UNK
     Route: 065
     Dates: start: 20141009
  10. KARDEGIC [Concomitant]
     Active Substance: ASPIRIN LYSINE
     Indication: THROMBOSIS PROPHYLAXIS
  11. LASIX [Concomitant]
     Active Substance: FUROSEMIDE
     Indication: PRODUCT USED FOR UNKNOWN INDICATION
     Dosage: 40 MG, UNK
     Route: 048
     Dates: start: 20140501, end: 20140916
  12. CORTANCYL [Concomitant]
     Active Substance: PREDNISONE
     Indication: PRODUCT USED FOR UNKNOWN INDICATION
     Dosage: 20 MG, UNK
     Route: 048
     Dates: start: 20141009, end: 20141024
  13. DASATINIB [Suspect]
     Active Substance: DASATINIB
     Dosage: 100 MG, UNK
     Route: 065
     Dates: start: 20120726, end: 20140614
  14. KARDEGIC [Concomitant]
     Active Substance: ASPIRIN LYSINE
     Indication: HYPERTENSION
     Dosage: KARDEGIC  75
     Route: 048
  15. LORATADINE. [Concomitant]
     Active Substance: LORATADINE
     Indication: RASH
     Route: 065

REACTIONS (3)
  - Malignant neoplasm progression [Unknown]
  - Angioedema [Recovered/Resolved]
  - Pleural effusion [Not Recovered/Not Resolved]

NARRATIVE: CASE EVENT DATE: 20140428
